FAERS Safety Report 21460841 (Version 2)
Quarter: 2023Q1

REPORT INFORMATION
  Report Type: Report from Study
  Country: US (occurrence: US)
  Receive Date: 20221015
  Receipt Date: 20230110
  Transmission Date: 20230418
  Serious: No
  Sender: FDA-Public Use
  Company Number: US-ABBVIE-22K-163-4417729-00

PATIENT
  Sex: Female

DRUGS (2)
  1. IMBRUVICA [Suspect]
     Active Substance: IBRUTINIB
     Indication: Lymphocytic leukaemia
     Route: 048
     Dates: start: 201909
  2. IMBRUVICA [Suspect]
     Active Substance: IBRUTINIB
     Indication: Lymphocytic leukaemia
     Route: 048
     Dates: start: 20191001

REACTIONS (12)
  - Adhesion [Unknown]
  - Blood potassium decreased [Unknown]
  - Cystitis [Unknown]
  - Hypotension [Unknown]
  - Pain in extremity [Unknown]
  - Pruritus [Unknown]
  - Hypersomnia [Unknown]
  - Muscle spasms [Unknown]
  - Memory impairment [Unknown]
  - Back pain [Unknown]
  - Asthenia [Unknown]
  - Inadequate diet [Unknown]
